FAERS Safety Report 7672225-3 (Version None)
Quarter: 2011Q3

REPORT INFORMATION
  Report Type: 
  Country: None (occurrence: None)
  Receive Date: 20110809
  Receipt Date: 20110727
  Transmission Date: 20111222
  Serious: Yes (Hospitalization, Other)
  Sender: FDA-Public Use
  Company Number: PHHY2011AU67718

PATIENT
  Sex: Male

DRUGS (1)
  1. CLOZAPINE [Suspect]
     Dosage: 250 MG, DAILY

REACTIONS (6)
  - VOMITING [None]
  - DRUG INEFFECTIVE [None]
  - VIRAL INFECTION [None]
  - DIARRHOEA [None]
  - MENTAL DISORDER [None]
  - MALAISE [None]
